FAERS Safety Report 13509236 (Version 1)
Quarter: 2017Q2

REPORT INFORMATION
  Report Type: Not Available
  Country: US (occurrence: US)
  Receive Date: 20170503
  Receipt Date: 20170503
  Transmission Date: 20170830
  Serious: No
  Sender: FDA-Public Use
  Company Number: US-ANIPHARMA-2016-US-003155

PATIENT
  Age: 47 Year
  Sex: Female

DRUGS (1)
  1. PROPRANOLOL 60 MG EXTENDED RELEASE CAPSULES [Suspect]
     Active Substance: PROPRANOLOL HYDROCHLORIDE
     Route: 048

REACTIONS (7)
  - Visual impairment [Unknown]
  - Dyspnoea [Unknown]
  - Malaise [Unknown]
  - Palpitations [Unknown]
  - Anxiety [Unknown]
  - Migraine [Unknown]
  - Drug ineffective [Unknown]
